FAERS Safety Report 6750441-2 (Version None)
Quarter: 2010Q2

REPORT INFORMATION
  Report Type: 
  Country: None (occurrence: None)
  Receive Date: 20100527
  Receipt Date: 20100519
  Transmission Date: 20101027
  Serious: Yes (Hospitalization)
  Sender: FDA-Public Use
  Company Number: 2009-01136

PATIENT
  Age: 65 Year
  Sex: Male
  Weight: 79 kg

DRUGS (5)
  1. VELCADE [Suspect]
     Indication: MULTIPLE MYELOMA
     Dosage: 2.4 MG, INTRAVENOUS
     Route: 042
     Dates: start: 20081110, end: 20090226
  2. DEXAMETHASONE [Concomitant]
  3. PANTOPRAZOLE SODIUM [Concomitant]
  4. OCTAGAM [Concomitant]
  5. PAMIDRONATE DISODIUM [Concomitant]

REACTIONS (1)
  - NEOPLASM PROGRESSION [None]
